FAERS Safety Report 18821393 (Version 1)
Quarter: 2021Q1

REPORT INFORMATION
  Report Type: Spontaneous
  Country: GB (occurrence: GB)
  Receive Date: 20210202
  Receipt Date: 20210202
  Transmission Date: 20210419
  Serious: Yes (Other)
  Sender: FDA-Public Use
  Company Number: GB-DEXPHARM-20210098

PATIENT
  Age: 60 Year
  Sex: Male
  Weight: 84 kg

DRUGS (3)
  1. OMEPRAZOLE. [Suspect]
     Active Substance: OMEPRAZOLE
     Dosage: ONE TO BE TAKEN TWICE A DAY
     Dates: start: 20181207, end: 20190624
  2. FAMOTIDINE. [Concomitant]
     Active Substance: FAMOTIDINE
     Dosage: ONE TO BE TAKEN AT NIGHT WHEN REQUIRED ; AS NECESSARY
     Dates: start: 20201028
  3. LANSOPRAZOLE. [Suspect]
     Active Substance: LANSOPRAZOLE
     Dosage: ONE TO BE TAKEN EACH MORNING
     Dates: start: 20200305, end: 20200629

REACTIONS (1)
  - Femur fracture [Unknown]

NARRATIVE: CASE EVENT DATE: 20191001
